FAERS Safety Report 5804986-X (Version None)
Quarter: 2008Q3

REPORT INFORMATION
  Report Type: 
  Country: None (occurrence: None)
  Receive Date: 20080702
  Receipt Date: 20071121
  Transmission Date: 20090109
  Serious: Yes (Other)
  Sender: FDA-Public Use
  Company Number: US-WYE-H01417707

PATIENT
  Age: 55 Year
  Sex: Female
  Weight: 59.02 kg

DRUGS (1)
  1. ADVIL [Suspect]
     Indication: ARTHRALGIA
     Dosage: 2 TABLETS AS NEEDED, ORAL
     Route: 048
     Dates: start: 20070501

REACTIONS (2)
  - PALPITATIONS [None]
  - PSYCHOMOTOR HYPERACTIVITY [None]
